FAERS Safety Report 5102745-7 (Version None)
Quarter: 2006Q3

REPORT INFORMATION
  Report Type: 
  Country: None (occurrence: None)
  Receive Date: 20060907
  Receipt Date: 20060830
  Transmission Date: 20061208
  Serious: Yes (Hospitalization)
  Sender: FDA-Public Use
  Company Number: HQWYE166130AUG06

PATIENT
  Age: 78 Year
  Sex: Male

DRUGS (6)
  1. CORDARONE [Suspect]
     Dosage: 1 DOSAGE FORM 1X PER 1 DAY ORAL
     Route: 048
  2. AERIUS (DESLORATADINE, ) [Suspect]
     Dosage: ORAL
     Route: 048
  3. AUGMENTIN '125' [Suspect]
     Indication: ABSCESS
     Dosage: INTRAVENOUS
     Route: 042
     Dates: start: 20060515, end: 20060601
  4. AUGMENTIN '125' [Suspect]
     Indication: SIGMOIDITIS
     Dosage: INTRAVENOUS
     Route: 042
     Dates: start: 20060515, end: 20060601
  5. BISOPROLOL FUMARATE [Suspect]
     Dosage: ORAL
     Route: 048
  6. PREVISCAN (FLUINDIONE, ) [Suspect]
     Dosage: ORAL
     Route: 048

REACTIONS (4)
  - CYTOLYTIC HEPATITIS [None]
  - HEPATITIS CHOLESTATIC [None]
  - NEPHROTIC SYNDROME [None]
  - RENAL FAILURE [None]
